FAERS Safety Report 5426041-3 (Version None)
Quarter: 2007Q3

REPORT INFORMATION
  Report Type: 
  Country: None (occurrence: None)
  Receive Date: 20070827
  Receipt Date: 20070817
  Transmission Date: 20080115
  Serious: Yes (Hospitalization)
  Sender: FDA-Public Use
  Company Number: DE-JNJFOC-20070701006

PATIENT
  Sex: Female
  Weight: 53 kg

DRUGS (6)
  1. INFLIXIMAB [Suspect]
     Route: 042
  2. INFLIXIMAB [Suspect]
     Indication: CROHN'S DISEASE
     Route: 042
  3. ACTONEL [Concomitant]
     Indication: OSTEOPOROSIS
  4. PECORTIN [Concomitant]
     Indication: CROHN'S DISEASE
  5. PANTAZOL [Concomitant]
     Indication: GASTROOESOPHAGEAL REFLUX DISEASE
  6. IDEAS [Concomitant]

REACTIONS (2)
  - COLON ADENOMA [None]
  - CROHN'S DISEASE [None]
